FAERS Safety Report 17876344 (Version 1)
Quarter: 2020Q2

REPORT INFORMATION
  Report Type: Spontaneous
  Country: NL (occurrence: NL)
  Receive Date: 20200609
  Receipt Date: 20200609
  Transmission Date: 20200714
  Serious: Yes (Hospitalization)
  Sender: FDA-Public Use
  Company Number: NL-MYLANLABS-2020M1055024

PATIENT
  Age: 59 Year
  Sex: Male

DRUGS (9)
  1. PLAVIX [Concomitant]
     Active Substance: CLOPIDOGREL BISULFATE
     Dosage: 75 MILLIGRAM, QD, 1D1T
     Route: 048
  2. AMIODARONE [Suspect]
     Active Substance: AMIODARONE
     Indication: ARRHYTHMIA
     Dosage: 200 MILLIGRAM,1 KEER PER DAG 1 STUK(S), EXTRA INFO: NB OPLAADDOSIS VAN 14 T/M18 NOVEMBER=3DD
     Route: 048
     Dates: start: 20131113
  3. GINGKO BILOBA [Concomitant]
     Active Substance: GINKGO
     Dosage: 2 DOSAGE FORM, QD, 2D1T
     Route: 048
  4. ASCAL BRISPER CARDIO NEURO [Concomitant]
     Active Substance: CARBASPIRIN CALCIUM
     Dosage: UNK
     Route: 048
  5. ZOCOR [Interacting]
     Active Substance: SIMVASTATIN
     Indication: PROPHYLAXIS
     Dosage: 40 MILLIGRAM, QD, 1 KEER PER DAG 1 STUK(S)
     Route: 048
     Dates: start: 20000101
  6. ENALAPRIL [Concomitant]
     Active Substance: ENALAPRIL
     Dosage: 20 MILLIGRAM, QD
     Route: 048
  7. NORVASC [Concomitant]
     Active Substance: AMLODIPINE BESYLATE
     Dosage: 10 MILLIGRAM, QD, 1D1T
     Route: 048
  8. NITROGLYCERINE [Concomitant]
     Active Substance: NITROGLYCERIN
     Dosage: UNK, ZONODIG
     Route: 048
  9. PROMOCARD [Concomitant]
     Active Substance: ISOSORBIDE MONONITRATE
     Dosage: 60 MILLIGRAM, QD, 1D1T
     Route: 048

REACTIONS (2)
  - Neuropathy peripheral [Unknown]
  - Drug interaction [Unknown]

NARRATIVE: CASE EVENT DATE: 20131113
